FAERS Safety Report 23954089 (Version 1)
Quarter: 2024Q2

REPORT INFORMATION
  Report Type: Other
  Country: US (occurrence: None)
  Receive Date: 20240609
  Receipt Date: 20240609
  Transmission Date: 20240716
  Serious: No
  Sender: FDA-Public Use
  Company Number: US-ROCHE-3487545

PATIENT
  Age: 20 Year
  Sex: Male

DRUGS (1)
  1. TNKASE [Suspect]
     Active Substance: TENECTEPLASE
     Indication: Spinal cord ischaemia
     Dosage: (TNKASE GENENTECH, SAN FRANCISCO, CA 1MG/ML) WAS ADMINISTERED INTO THE PREDICTED ORIGIN OF THE ANTER
     Route: 013

REACTIONS (2)
  - Off label use [Unknown]
  - No adverse event [Unknown]
